FAERS Safety Report 10146243 (Version 1)
Quarter: 2014Q2

REPORT INFORMATION
  Report Type: Spontaneous
  Country: US (occurrence: US)
  Receive Date: 20140501
  Receipt Date: 20140501
  Transmission Date: 20141212
  Serious: Yes (Hospitalization, Other)
  Sender: FDA-Public Use
  Company Number: US-ELI_LILLY_AND_COMPANY-US201404007993

PATIENT
  Age: 82 Year
  Sex: Female

DRUGS (3)
  1. FORTEO [Suspect]
     Indication: OSTEOPOROSIS
     Dosage: UNK, QD
     Route: 065
  2. FORTEO [Suspect]
     Dosage: UNK, QD
     Route: 065
     Dates: start: 20140327
  3. RECLAST [Suspect]
     Indication: LUMBAR VERTEBRAL FRACTURE
     Route: 065

REACTIONS (4)
  - Cystitis [Unknown]
  - Lumbar vertebral fracture [Unknown]
  - Hip fracture [Unknown]
  - Spinal fracture [Unknown]
